FAERS Safety Report 7068270-1 (Version None)
Quarter: 2010Q4

REPORT INFORMATION
  Report Type: 
  Country: None (occurrence: None)
  Receive Date: 20101020
  Receipt Date: 20101011
  Transmission Date: 20110411
  Serious: Yes (Other)
  Sender: FDA-Public Use
  Company Number: DSA_44090_2010

PATIENT
  Age: 55 Year
  Sex: Female

DRUGS (4)
  1. BUPROPION HCL [Suspect]
     Indication: MAJOR DEPRESSION
     Dosage: DF
  2. VENLAFAXINE [Suspect]
     Indication: MAJOR DEPRESSION
     Dosage: 225 MG QD, 150 MG QD, 75 MG QD
  3. MIRTAZAPINE [Concomitant]
  4. OPIPRAMOL [Concomitant]

REACTIONS (4)
  - ANTIDEPRESSANT DRUG LEVEL DECREASED [None]
  - ANTIDEPRESSANT DRUG LEVEL INCREASED [None]
  - DRUG INTERACTION [None]
  - TENSION [None]
